FAERS Safety Report 5636184-7 (Version None)
Quarter: 2008Q1

REPORT INFORMATION
  Report Type: 
  Country: None (occurrence: None)
  Receive Date: 20080219
  Receipt Date: 20080206
  Transmission Date: 20080703
  Serious: Yes (Other)
  Sender: FDA-Public Use
  Company Number: 2008-00692

PATIENT
  Age: 85 Year
  Sex: Female

DRUGS (3)
  1. FIORICET [Suspect]
     Indication: OSTEOARTHRITIS
     Dosage: 1950 MG, DAILY X23 FSYS, ORAL
     Route: 048
  2. ALCOHOL(ETHANOL) [Suspect]
     Indication: ALCOHOL USE
     Dosage: LESS THAN 10 G, DAILY, ORAL
     Route: 048
  3. CORTICOSTEROIDS [Concomitant]

REACTIONS (4)
  - DRUG INTERACTION [None]
  - HEPATOTOXICITY [None]
  - LIVER INJURY [None]
  - POTENTIATING DRUG INTERACTION [None]
